FAERS Safety Report 15068679 (Version 1)
Quarter: 2018Q2

REPORT INFORMATION
  Report Type: Spontaneous
  Country: US (occurrence: US)
  Receive Date: 20180606
  Receipt Date: 20180606
  Transmission Date: 20180711
  Serious: No
  Sender: FDA-Public Use
  Company Number: None

PATIENT
  Age: 59 Year
  Sex: Male

DRUGS (2)
  1. ABSTRAL [Concomitant]
     Active Substance: FENTANYL CITRATE
  2. OXYCODONE 30 MG RHO [Suspect]
     Active Substance: OXYCODONE
     Indication: PAIN
     Route: 048
     Dates: start: 20171026

REACTIONS (3)
  - Product substitution issue [None]
  - Cardiac failure congestive [None]
  - Dyspnoea [None]
